FAERS Safety Report 18230595 (Version 1)
Quarter: 2020Q3

REPORT INFORMATION
  Report Type: Spontaneous
  Country: GB (occurrence: FR)
  Receive Date: 20200904
  Receipt Date: 20200904
  Transmission Date: 20201103
  Serious: Yes (Other)
  Sender: FDA-Public Use
  Company Number: FR-ASTELLAS-2020US030005

PATIENT
  Age: 35 Year

DRUGS (2)
  1. AVASTIN [Suspect]
     Active Substance: BEVACIZUMAB
     Indication: LUNG CARCINOMA CELL TYPE UNSPECIFIED STAGE IV
     Dosage: UNK UNK, UNKNOWN FREQ.
     Route: 065
     Dates: start: 20100316
  2. TARCEVA [Suspect]
     Active Substance: ERLOTINIB HYDROCHLORIDE
     Indication: LUNG CARCINOMA CELL TYPE UNSPECIFIED STAGE IV
     Dosage: UNK UNK, UNKNOWN FREQ.
     Route: 048
     Dates: start: 20100316

REACTIONS (3)
  - Acne [Unknown]
  - Dry skin [Unknown]
  - Pleural effusion [Recovered/Resolved]
